FAERS Safety Report 4274232-X (Version None)
Quarter: 2004Q1

REPORT INFORMATION
  Report Type: 
  Country: None (occurrence: None)
  Receive Date: 20040115
  Receipt Date: 20040105
  Transmission Date: 20041129
  Serious: Yes (Other)
  Sender: FDA-Public Use
  Company Number: US057927

PATIENT
  Age: 41 Year
  Sex: Female

DRUGS (5)
  1. ENBREL [Suspect]
     Indication: RHEUMATOID ARTHRITIS
     Dosage: 25 MG, TWICE WEEKLY, SC
     Route: 058
     Dates: start: 20031006, end: 20031118
  2. REMICADE [Suspect]
     Dosage: 240 MG
     Dates: start: 20021101, end: 20030901
  3. METHOTREXATE [Concomitant]
  4. FOLIC ACID [Concomitant]
  5. DICLOFENAC SODIUM [Concomitant]

REACTIONS (1)
  - FACIAL PALSY [None]
